FAERS Safety Report 23216775 (Version 3)
Quarter: 2023Q4

REPORT INFORMATION
  Report Type: Report from Study
  Country: IE (occurrence: IE)
  Receive Date: 20231122
  Receipt Date: 20231207
  Transmission Date: 20240110
  Serious: Yes (Hospitalization)
  Sender: FDA-Public Use
  Company Number: IE-Eisai Medical Research-EC-2022-126584

PATIENT
  Age: 50 Year
  Sex: Female
  Weight: 73.9 kg

DRUGS (12)
  1. LENVATINIB [Suspect]
     Active Substance: LENVATINIB
     Indication: Renal cell carcinoma
     Route: 048
     Dates: start: 20221017, end: 20221019
  2. LENVATINIB [Suspect]
     Active Substance: LENVATINIB
     Dosage: STARTING DOSE 20 MG, FLUCTUATED DOSE
     Route: 048
     Dates: start: 20221021
  3. BELZUTIFAN [Suspect]
     Active Substance: BELZUTIFAN
     Indication: Renal cell carcinoma
     Route: 048
     Dates: start: 20221017, end: 20221019
  4. BELZUTIFAN [Suspect]
     Active Substance: BELZUTIFAN
     Route: 048
     Dates: start: 20221021
  5. LEVOTHYROXINE [Concomitant]
     Active Substance: LEVOTHYROXINE
     Dates: start: 202106, end: 20230112
  6. CETIRIZINE HYDROCHLORIDE [Concomitant]
     Active Substance: CETIRIZINE HYDROCHLORIDE
     Dates: start: 202012
  7. OMEPRAZOLE [Concomitant]
     Active Substance: OMEPRAZOLE
     Dates: start: 202108
  8. AMLODIPINE [Concomitant]
     Active Substance: AMLODIPINE BESYLATE
     Dates: start: 202004
  9. RAMIPRIL [Concomitant]
     Active Substance: RAMIPRIL
     Dates: start: 202004, end: 20221102
  10. XANAX [Concomitant]
     Active Substance: ALPRAZOLAM
     Dates: start: 202002
  11. NOVORAPID [Concomitant]
     Active Substance: INSULIN ASPART
     Dates: start: 20221008
  12. LANTUS [Concomitant]
     Active Substance: INSULIN GLARGINE
     Dates: start: 20221008

REACTIONS (1)
  - Haemangioblastoma [Not Recovered/Not Resolved]

NARRATIVE: CASE EVENT DATE: 20221018
